FAERS Safety Report 9037868 (Version 3)
Quarter: 2013Q2

REPORT INFORMATION
  Report Type: Spontaneous
  Country: US (occurrence: US)
  Receive Date: 20130129
  Receipt Date: 20130401
  Transmission Date: 20140414
  Serious: Yes (Hospitalization)
  Sender: FDA-Public Use
  Company Number: US-BAYER-2013-010234

PATIENT
  Age: 51 Year
  Sex: Female
  Weight: 99.77 kg

DRUGS (5)
  1. YASMIN [Suspect]
     Indication: ACNE
     Dosage: UNK
     Dates: start: 200610, end: 200704
  2. LOPRESSOR [Concomitant]
     Dosage: 25 TWICE DAILY
     Route: 048
  3. LIPITOR [Concomitant]
     Dosage: 10 MG, HS
     Route: 048
  4. NAPROXEN [Concomitant]
     Dosage: UNK
     Dates: start: 201211
  5. NEXIUM [Concomitant]
     Dosage: UNK
     Dates: start: 2012

REACTIONS (13)
  - Atrioventricular block [None]
  - Coronary artery stenosis [None]
  - Injury [None]
  - Pain [None]
  - General physical health deterioration [None]
  - Emotional distress [None]
  - Anxiety [None]
  - Anhedonia [None]
  - Pain [None]
  - Thrombosis [None]
  - Pulmonary embolism [None]
  - Dyspnoea [None]
  - Local swelling [None]
